FAERS Safety Report 15803812 (Version 1)
Quarter: 2019Q1

REPORT INFORMATION
  Report Type: Spontaneous
  Country: CH (occurrence: CH)
  Receive Date: 20190109
  Receipt Date: 20190109
  Transmission Date: 20190417
  Serious: Yes (Hospitalization)
  Sender: FDA-Public Use
  Company Number: CH-JNJFOC-20190105876

PATIENT
  Age: 51 Year
  Sex: Male
  Weight: 102 kg

DRUGS (1)
  1. REMICADE [Suspect]
     Active Substance: INFLIXIMAB
     Indication: RHEUMATIC DISORDER
     Route: 042
     Dates: start: 20180910

REACTIONS (4)
  - Infusion related reaction [Unknown]
  - Oxygen saturation decreased [Unknown]
  - Dyspnoea [Unknown]
  - Cold sweat [Unknown]

NARRATIVE: CASE EVENT DATE: 20180910
